FAERS Safety Report 9254183 (Version 2)
Quarter: 2013Q3

REPORT INFORMATION
  Report Type: Spontaneous
  Country: US (occurrence: None)
  Receive Date: 20130416
  Receipt Date: 20130730
  Transmission Date: 20140515
  Serious: Yes (Hospitalization)
  Sender: FDA-Public Use
  Company Number: 2013035334

PATIENT
  Age: 63 Year
  Sex: Male
  Weight: 88.45 kg

DRUGS (35)
  1. PRIVIGEN (IMMUNE GLOBULIN INTRAVENOUS (HUMAN) 10% LIQUID) [Suspect]
     Indication: MYELODYSPLASTIC SYNDROME
     Dosage: (30 G, 1X/MONTH, 10 GM VIAL; INFUSE OVER 2-4 HOURS), (INTRAVENOUS (NOT OTHERWISE SPECIFIED)
     Dates: start: 20130401, end: 20130401
  2. OXYGEN (OXYGEN) [Concomitant]
  3. DETROL (TOLTERODINE) [Concomitant]
  4. AMBIEN (ZOLPIDEM TARTRATE) [Concomitant]
  5. LASIX (FUROSEMIDE) [Concomitant]
  6. MYCOPHENOLATE (MYCOPHENOLATE MOFETIL) [Concomitant]
  7. PREDNISONE (PREDNISONE) [Concomitant]
  8. LIPITOR (ATORVASTATIN CALCIUM) [Concomitant]
  9. AMOXICILLIN (AMOXICILLIN) [Concomitant]
  10. GABAPENTIN (GABAPENTIN) [Concomitant]
  11. FENTANYL (FENTANYL) [Concomitant]
  12. FLONASE (FLUTICASONE PROPIONATE) [Concomitant]
  13. VALTREX (VALACICLOVIR HYDROCHLORIDE) [Concomitant]
  14. VITAMIN B12 (CYANOCOBALAMIN) [Concomitant]
  15. PRILOSEC [Concomitant]
  16. KLOR-CON (POTASSIUM CHLORIDE) [Concomitant]
  17. NYSTATIN (NYSTATIN) [Concomitant]
  18. FLOMAX (MORNIFLUMATE) [Concomitant]
  19. BACTRIM (BACTRIM /00086101/) [Concomitant]
  20. PERCOCET (TYLOX /00446701/) [Concomitant]
  21. ATIVAN (LORAZEPAM) [Concomitant]
  22. ZETIA (EZETIMIBE) [Concomitant]
  23. VITAMIN D (ERGOCALCIFEROL) [Concomitant]
  24. ASPIRIN (ACETYLSALICYLIC ACID) [Concomitant]
  25. REGLAN (METOCLOPRAMIDE) [Concomitant]
  26. DIPHENHYDRAMINE (DIPHENHYDRAMINE) [Concomitant]
  27. HEPARIN (HEPARIN) [Concomitant]
  28. SODIUM CHLORIDE [Concomitant]
  29. EPIPEN (EPINEPHRINE) [Concomitant]
  30. NEBIVOLOL (NEBIVOLOL) [Concomitant]
  31. DEPO-TESTOSTERONE (TESTOSTERONE CIPIONATE) [Concomitant]
  32. DEXAMETHASONE [Concomitant]
  33. FOLIC ACID (FOLIC ACID) [Concomitant]
  34. FERROUS SULFATE (FERROUS SULFATE) [Concomitant]
  35. BYSTOLIC (NEBIVOLOL) [Concomitant]

REACTIONS (3)
  - Off label use [None]
  - Diarrhoea haemorrhagic [None]
  - Upper respiratory tract infection [None]
